FAERS Safety Report 17156872 (Version 3)
Quarter: 2020Q1

REPORT INFORMATION
  Report Type: Spontaneous
  Country: IT (occurrence: IT)
  Receive Date: 20191216
  Receipt Date: 20200205
  Transmission Date: 20200409
  Serious: Yes (Hospitalization, Other)
  Sender: FDA-Public Use
  Company Number: IT-AUROBINDO-AUR-APL-2019-104936

PATIENT
  Age: 47 Year
  Sex: Male

DRUGS (5)
  1. QUETIAPINA [Concomitant]
     Active Substance: QUETIAPINE
     Indication: PSYCHOTIC DISORDER
     Dosage: 25 MILLIGRAM
     Route: 048
     Dates: start: 20190507
  2. DELORAZEPAM [Concomitant]
     Active Substance: DELORAZEPAM
     Indication: ANXIETY
     Dosage: 30 GTT DROPS
     Route: 048
     Dates: start: 20190507
  3. ZOLPIDEM [Suspect]
     Active Substance: ZOLPIDEM TARTRATE
     Indication: INSOMNIA
     Dosage: 150 MILLIGRAM, TOTAL
     Route: 048
     Dates: start: 20191124
  4. VENLAFAXINA [Concomitant]
     Active Substance: VENLAFAXINE HYDROCHLORIDE
     Indication: DEPRESSION
     Dosage: 75 MILLIGRAM
     Route: 048
     Dates: start: 20190507
  5. MIRTAZAPINA ACTAVIS [Concomitant]
     Active Substance: MIRTAZAPINE
     Indication: DEPRESSION
     Dosage: 30 MILLIGRAM
     Route: 048
     Dates: start: 20190507

REACTIONS (4)
  - Restlessness [Recovered/Resolved]
  - Anxiety [Recovered/Resolved]
  - Visual impairment [Recovered/Resolved]
  - Drug abuse [Recovered/Resolved]

NARRATIVE: CASE EVENT DATE: 20191124
